FAERS Safety Report 8167401-X (Version None)
Quarter: 2012Q1

REPORT INFORMATION
  Report Type: 
  Country: None (occurrence: None)
  Receive Date: 20120227
  Receipt Date: 20120222
  Transmission Date: 20120608
  Serious: Yes (Death, Hospitalization)
  Sender: FDA-Public Use
  Company Number: US-GILEAD-2012-0050411

PATIENT
  Sex: Male

DRUGS (2)
  1. LETAIRIS [Suspect]
     Indication: PULMONARY HYPERTENSION
     Dosage: 5 MG, UNK
     Route: 048
     Dates: start: 20111118, end: 20120120
  2. LETAIRIS [Suspect]
     Indication: UNEVALUABLE EVENT

REACTIONS (4)
  - RENAL FAILURE ACUTE [None]
  - DEATH [None]
  - CHEST PAIN [None]
  - CARDIAC FAILURE CONGESTIVE [None]
